FAERS Safety Report 8560169-4 (Version None)
Quarter: 2012Q2

REPORT INFORMATION
  Report Type: 
  Country: None (occurrence: None)
  Receive Date: 20120418
  Receipt Date: 20090126
  Transmission Date: 20120825
  Serious: Yes (Other)
  Sender: FDA-Public Use
  Company Number: PHEH2006US02886

PATIENT
  Age: 48 Year
  Sex: Female
  Weight: 81.6 kg

DRUGS (7)
  1. NORETHINDRONE-MESTRANOL (MESTRANOL, NORETHISTERONE) [Suspect]
     Indication: MENOPAUSE
     Dosage: INJECTION NOS
     Dates: start: 19870101, end: 19890101
  2. NEURONTIN [Concomitant]
  3. HYDROCODONE BITARTRATE [Concomitant]
  4. PREMARIN [Suspect]
     Indication: MENOPAUSE
     Dosage: 0.625 MG, ORAL
     Route: 048
     Dates: start: 19960101, end: 20010101
  5. ESTRADERM [Suspect]
     Indication: MENOPAUSE
     Dosage: 0.01 MG, TRANSDERMAL
     Route: 062
     Dates: start: 19890101, end: 19930101
  6. ESTRATEST [Suspect]
     Indication: MENOPAUSE
     Dates: start: 19950101, end: 19950101
  7. CIMETIDINE [Concomitant]

REACTIONS (21)
  - NEOPLASM MALIGNANT [None]
  - URINARY INCONTINENCE [None]
  - OESTROGEN RECEPTOR ASSAY POSITIVE [None]
  - POSTMENOPAUSE [None]
  - BREAST MASS [None]
  - BREAST CALCIFICATIONS [None]
  - OVARIAN CANCER [None]
  - FALL [None]
  - OMENTECTOMY [None]
  - CHEMOTHERAPY [None]
  - DEPRESSION [None]
  - BREAST CANCER [None]
  - CHOLECYSTITIS CHRONIC [None]
  - OSTEOPOROSIS [None]
  - ARTHRITIS [None]
  - INTRADUCTAL PAPILLOMA OF BREAST [None]
  - NIPPLE EXUDATE BLOODY [None]
  - MODIFIED RADICAL MASTECTOMY [None]
  - CHOLECYSTECTOMY [None]
  - HEART RATE IRREGULAR [None]
  - SPINAL DISORDER [None]
